FAERS Safety Report 8341107-6 (Version None)
Quarter: 2012Q2

REPORT INFORMATION
  Report Type: 
  Country: None (occurrence: None)
  Receive Date: 20120507
  Receipt Date: 20120501
  Transmission Date: 20120825
  Serious: Yes (Disabling)
  Sender: FDA-Public Use
  Company Number: US-GLAXOSMITHKLINE-A0975979A

PATIENT
  Sex: Male

DRUGS (4)
  1. FLOMAX [Concomitant]
  2. ZOLOFT [Concomitant]
  3. AVODART [Suspect]
     Indication: BENIGN PROSTATIC HYPERPLASIA
     Route: 048
  4. PLAVIX [Concomitant]

REACTIONS (1)
  - FOREIGN BODY [None]
